FAERS Safety Report 7684096-X (Version None)
Quarter: 2011Q3

REPORT INFORMATION
  Report Type: 
  Country: None (occurrence: None)
  Receive Date: 20110815
  Receipt Date: 20110808
  Transmission Date: 20111222
  Serious: Yes (Death, Hospitalization, Other)
  Sender: FDA-Public Use
  Company Number: US-BAYER-201041783NA

PATIENT
  Age: 66 Year
  Sex: Female
  Weight: 69 kg

DRUGS (10)
  1. LIPITOR [Concomitant]
     Dosage: 40 MG, QD
     Route: 048
  2. HEPARIN [Concomitant]
     Dosage: 30,000 UNITS
     Route: 042
     Dates: start: 20060120
  3. TRASYLOL [Suspect]
     Indication: CORONARY ARTERY BYPASS
     Dosage: UNK
     Route: 042
     Dates: start: 20060120
  4. CEFAZOLIN [Concomitant]
     Dosage: 1 G, ONCE
     Route: 042
     Dates: start: 20060120
  5. SYNTHROID [Concomitant]
     Dosage: 0.088 MG, QD, LONGTERM USE
     Route: 048
  6. ACIPHEX [Concomitant]
     Dosage: 20 MG, QD, LONGTERM USE
     Route: 048
  7. ZETIA [Concomitant]
     Dosage: 10 MG, QD
     Route: 048
  8. ACETYLSALICYLIC ACID SRT [Concomitant]
     Dosage: 81 MG, QD, LONGTERM USE
     Route: 048
  9. PROTAMINE [Concomitant]
     Dosage: 100ML
     Route: 042
     Dates: start: 20060120
  10. DOPAMINE HCL [Concomitant]
     Dosage: 8-10CC
     Route: 042
     Dates: start: 20060120

REACTIONS (16)
  - HYPOREFLEXIA [None]
  - DEATH [None]
  - RENAL FAILURE [None]
  - STRESS [None]
  - PAIN [None]
  - CEREBROVASCULAR ACCIDENT [None]
  - INJURY [None]
  - MYDRIASIS [None]
  - ANXIETY [None]
  - UNEVALUABLE EVENT [None]
  - FEAR [None]
  - PUPIL FIXED [None]
  - RENAL IMPAIRMENT [None]
  - RENAL INJURY [None]
  - MULTI-ORGAN FAILURE [None]
  - EMOTIONAL DISTRESS [None]
